FAERS Safety Report 19364720 (Version 1)
Quarter: 2021Q2

REPORT INFORMATION
  Report Type: Spontaneous
  Country: US (occurrence: US)
  Receive Date: 20210602
  Receipt Date: 20210602
  Transmission Date: 20210717
  Serious: Yes (Other)
  Sender: FDA-Public Use
  Company Number: US-PFIZER INC-2021600530

PATIENT

DRUGS (1)
  1. BOSULIF [Suspect]
     Active Substance: BOSUTINIB MONOHYDRATE
     Dosage: 200 MG, 2 WEEKS

REACTIONS (6)
  - Cardiac arrest [Unknown]
  - Dysphagia [Unknown]
  - Diarrhoea [Unknown]
  - Lactic acidosis [Unknown]
  - Abdominal pain [Unknown]
  - Anaemia [Unknown]
